FAERS Safety Report 4880138-5 (Version None)
Quarter: 2006Q1

REPORT INFORMATION
  Report Type: 
  Country: None (occurrence: None)
  Receive Date: 20060113
  Receipt Date: 20051014
  Transmission Date: 20060701
  Serious: Yes (Other)
  Sender: FDA-Public Use
  Company Number: PHNU2005DE03449

PATIENT
  Age: 57 Year
  Sex: Female

DRUGS (3)
  1. ZOMETA [Suspect]
     Indication: PROPHYLAXIS
     Dosage: 4 MG, EVERY 6 WEEKS
     Dates: start: 20040401, end: 20050601
  2. ARIMIDEX [Concomitant]
     Dosage: UNK, UNK
     Route: 048
  3. ISCADOR [Concomitant]
     Route: 065

REACTIONS (6)
  - BONE DISORDER [None]
  - IMPAIRED HEALING [None]
  - INFLAMMATION OF WOUND [None]
  - OSTEONECROSIS [None]
  - TOOTH DISORDER [None]
  - TOOTH EXTRACTION [None]
